FAERS Safety Report 19729308 (Version 1)
Quarter: 2021Q3

REPORT INFORMATION
  Report Type: Spontaneous
  Country: US (occurrence: US)
  Receive Date: 20210820
  Receipt Date: 20210820
  Transmission Date: 20211014
  Serious: No
  Sender: FDA-Public Use
  Company Number: US-PFIZER INC-2021557416

PATIENT
  Age: 29 Year
  Sex: Male

DRUGS (4)
  1. XELJANZ [Suspect]
     Active Substance: TOFACITINIB CITRATE
     Indication: CROHN^S DISEASE
     Dosage: 10 MG, 2X/DAY
     Route: 048
     Dates: start: 202106
  2. XELJANZ [Suspect]
     Active Substance: TOFACITINIB CITRATE
     Indication: COLITIS
  3. MERCAPTOPURINE. [Concomitant]
     Active Substance: MERCAPTOPURINE
     Dosage: 50 MG
  4. XELJANZ [Suspect]
     Active Substance: TOFACITINIB CITRATE
     Indication: GASTROINTESTINAL INFLAMMATION

REACTIONS (2)
  - Food poisoning [Unknown]
  - Off label use [Unknown]
